FAERS Safety Report 7049095-X (Version None)
Quarter: 2010Q4

REPORT INFORMATION
  Report Type: 
  Country: None (occurrence: None)
  Receive Date: 20101018
  Receipt Date: 20101013
  Transmission Date: 20110411
  Serious: Yes (Hospitalization)
  Sender: FDA-Public Use
  Company Number: ES-SHIRE-SPV1-2010-01204

PATIENT
  Sex: Female
  Weight: 60 kg

DRUGS (5)
  1. XAGRID [Suspect]
     Indication: ESSENTIAL THROMBOCYTHAEMIA
     Dosage: 3 DF, 1X/DAY:QD
     Route: 048
     Dates: start: 20090923, end: 20100630
  2. LEXATIN [Concomitant]
     Indication: ANXIETY DISORDER
     Dosage: 1.5 MG, 1X/DAY:QD
     Route: 048
  3. CIPRALEX [Concomitant]
     Indication: DEPRESSION
     Dosage: 15 MG, 1X/DAY:QD
  4. LORAZEPAM [Concomitant]
     Indication: PRODUCT USED FOR UNKNOWN INDICATION
     Dosage: 25 MG, 1X/DAY:QD
     Route: 048
  5. AXURA [Concomitant]
     Indication: PRODUCT USED FOR UNKNOWN INDICATION
     Dosage: UNK, UNKNOWN
     Route: 065

REACTIONS (2)
  - HEAD INJURY [None]
  - SYNCOPE [None]
